FAERS Safety Report 24968336 (Version 2)
Quarter: 2025Q3

REPORT INFORMATION
  Report Type: Spontaneous
  Country: US (occurrence: US)
  Receive Date: 20250214
  Receipt Date: 20250810
  Transmission Date: 20251021
  Serious: No
  Sender: ALEXION PHARMACEUTICALS
  Company Number: US-009507513-2408USA010402

PATIENT
  Sex: Male

DRUGS (3)
  1. LYNPARZA [Suspect]
     Active Substance: OLAPARIB
     Indication: Prostate cancer metastatic
  2. LYNPARZA [Suspect]
     Active Substance: OLAPARIB
  3. LUPRON [Concomitant]
     Active Substance: LEUPROLIDE ACETATE

REACTIONS (6)
  - Poor quality sleep [Unknown]
  - Dyspnoea [Unknown]
  - Illness [Unknown]
  - Red blood cell count decreased [Unknown]
  - Ill-defined disorder [Unknown]
  - Weight decreased [Unknown]
